FAERS Safety Report 5533838-8 (Version None)
Quarter: 2007Q4

REPORT INFORMATION
  Report Type: 
  Country: None (occurrence: None)
  Receive Date: 20071129
  Receipt Date: 20071115
  Transmission Date: 20080405
  Serious: Yes (Congenital Anomaly)
  Sender: FDA-Public Use
  Company Number: 164210ISR

PATIENT
  Sex: 0

DRUGS (1)
  1. LAMOTRIGINE [Suspect]
     Indication: EPILEPSY
     Dosage: 40 MG (20 MG, 2 IN 1 D) TRANSPLACENTAL
     Route: 064
     Dates: start: 20060101

REACTIONS (6)
  - ANENCEPHALY [None]
  - CONGENITAL ECTOPIC BLADDER [None]
  - DRUG EXPOSURE DURING PREGNANCY [None]
  - EXOMPHALOS [None]
  - LIMB MALFORMATION [None]
  - NEONATAL DISORDER [None]
